FAERS Safety Report 10257588 (Version 1)
Quarter: 2014Q2

REPORT INFORMATION
  Report Type: Spontaneous
  Country: US (occurrence: None)
  Receive Date: 20140623
  Receipt Date: 20140623
  Transmission Date: 20141212
  Serious: Yes (Disabling)
  Sender: FDA-Public Use
  Company Number: None

PATIENT
  Age: 6 Month
  Sex: Female
  Weight: 7.26 kg

DRUGS (2)
  1. OMNICEF [Suspect]
     Indication: EAR INFECTION
  2. OMNICEF [Suspect]
     Indication: PNEUMONIA

REACTIONS (2)
  - Diarrhoea [None]
  - Carbohydrate intolerance [None]
